FAERS Safety Report 23944485 (Version 1)
Quarter: 2024Q2

REPORT INFORMATION
  Report Type: Other
  Country: FR (occurrence: FR)
  Receive Date: 20240606
  Receipt Date: 20240606
  Transmission Date: 20240716
  Serious: Yes (Death)
  Sender: FDA-Public Use
  Company Number: None

PATIENT

DRUGS (5)
  1. SERTRALINE [Suspect]
     Active Substance: SERTRALINE HYDROCHLORIDE
     Indication: Poisoning deliberate
     Dosage: 21 DOSAGE FORM 1 TOTAL
     Route: 048
     Dates: start: 20240203, end: 20240203
  2. OXAZEPAM [Suspect]
     Active Substance: OXAZEPAM
     Indication: Poisoning deliberate
     Dosage: 60 DOSAGE FORM 1 TOTAL
     Route: 048
     Dates: start: 20240203, end: 20240203
  3. TERALITHE [Suspect]
     Active Substance: LITHIUM CARBONATE
     Indication: Poisoning deliberate
     Dosage: 40 DOSAGE FORM 1 TOTAL
     Route: 048
     Dates: start: 20240203, end: 20240203
  4. AMITRIPTYLINE HYDROCHLORIDE [Suspect]
     Active Substance: AMITRIPTYLINE HYDROCHLORIDE
     Indication: Poisoning deliberate
     Dosage: 1 DOSAGE FORM 1 TOTAL
     Route: 048
     Dates: start: 20240203, end: 20240203
  5. ELIQUIS [Suspect]
     Active Substance: APIXABAN
     Indication: Poisoning deliberate
     Dosage: 40 DOSAGE FORM 1 TOTAL
     Route: 048
     Dates: start: 20240203, end: 20240203

REACTIONS (3)
  - Coma [Fatal]
  - Multiple organ dysfunction syndrome [Fatal]
  - Cardio-respiratory arrest [Fatal]

NARRATIVE: CASE EVENT DATE: 20240203
